FAERS Safety Report 24335457 (Version 1)
Quarter: 2024Q3

REPORT INFORMATION
  Report Type: Report from Study
  Country: DE (occurrence: DE)
  Receive Date: 20240919
  Receipt Date: 20240919
  Transmission Date: 20241016
  Serious: Yes (Hospitalization, Other)
  Sender: ABBVIE
  Company Number: DE-ABBVIE-5927457

PATIENT
  Sex: Male

DRUGS (13)
  1. CARBIDOPA\LEVODOPA [Suspect]
     Active Substance: CARBIDOPA\LEVODOPA
     Indication: Parkinson^s disease
     Dosage: MD: 4.0ML; CRD: 3.4ML/H; ED: 2.0ML
     Route: 050
     Dates: start: 20210618
  2. CARBIDOPA\LEVODOPA [Suspect]
     Active Substance: CARBIDOPA\LEVODOPA
     Dosage: MD: 4.0ML; CRD: 3.8ML/H; ED: 2.0ML
     Route: 050
  3. APIXABAN [Concomitant]
     Active Substance: APIXABAN
     Indication: Product used for unknown indication
     Dosage: FREQUENCY TEXT: 2-0-2
     Route: 065
  4. APIXABAN [Concomitant]
     Active Substance: APIXABAN
     Indication: Product used for unknown indication
     Dosage: FREQUENCY TEXT: 1-0-1
     Route: 065
  5. APIXABAN [Concomitant]
     Active Substance: APIXABAN
     Indication: Product used for unknown indication
     Route: 065
  6. MELATONIN [Concomitant]
     Active Substance: MELATONIN
     Indication: Product used for unknown indication
  7. CLOZAPINE [Concomitant]
     Active Substance: CLOZAPINE
     Indication: Product used for unknown indication
  8. CLOZAPINE [Concomitant]
     Active Substance: CLOZAPINE
     Indication: Product used for unknown indication
  9. BUPRENORPHINE [Concomitant]
     Active Substance: BUPRENORPHINE
     Indication: Product used for unknown indication
     Dosage: 0.005MG/H ONCE A WEEK (FRIDAYS)
  10. BUPRENORPHINE [Concomitant]
     Active Substance: BUPRENORPHINE
     Indication: Product used for unknown indication
     Dosage: 0.010MG/H ONCE A WEEK (FRIDAYS)
  11. BENSERAZIDE\LEVODOPA [Concomitant]
     Active Substance: BENSERAZIDE\LEVODOPA
     Indication: Product used for unknown indication
     Dosage: LT, FORM STRENGTH:100/25 MILLIGRAM
  12. RIVASTIGMINE [Concomitant]
     Active Substance: RIVASTIGMINE
     Indication: Product used for unknown indication
  13. RIVASTIGMINE [Concomitant]
     Active Substance: RIVASTIGMINE
     Indication: Product used for unknown indication
     Dosage: FREQUENCY TEXT: 24 HOUR

REACTIONS (16)
  - Hospitalisation [Unknown]
  - Tremor [Unknown]
  - Dyskinesia [Unknown]
  - Neuralgia [Unknown]
  - Hyponatraemia [Unknown]
  - Chronic kidney disease [Unknown]
  - Lymphopenia [Unknown]
  - Parkinson^s disease [Unknown]
  - Muscle rigidity [Unknown]
  - Hypertension [Unknown]
  - Deep vein thrombosis [Unknown]
  - C-reactive protein increased [Unknown]
  - Glucose tolerance impaired [Unknown]
  - Thinking abnormal [Unknown]
  - Disorientation [Unknown]
  - Hypokinesia [Unknown]
